FAERS Safety Report 9466181 (Version 1)
Quarter: 2013Q3

REPORT INFORMATION
  Report Type: Spontaneous
  Country: US (occurrence: US)
  Receive Date: 20130820
  Receipt Date: 20130820
  Transmission Date: 20140515
  Serious: Yes (Other)
  Sender: FDA-Public Use
  Company Number: US-TEVA-426906USA

PATIENT
  Age: 24 Year
  Sex: Female
  Weight: 61.29 kg

DRUGS (1)
  1. PARAGARD 380A [Suspect]
     Indication: CONTRACEPTION
     Route: 015
     Dates: start: 20120718, end: 201306

REACTIONS (5)
  - Device dislocation [Recovered/Resolved]
  - Abdominal pain lower [Recovered/Resolved]
  - Pain [Recovered/Resolved]
  - Dysmenorrhoea [Recovered/Resolved]
  - Complication of device removal [Recovered/Resolved]
